FAERS Safety Report 12091694 (Version 1)
Quarter: 2016Q1

REPORT INFORMATION
  Report Type: Spontaneous
  Country: US (occurrence: US)
  Receive Date: 20160218
  Receipt Date: 20160218
  Transmission Date: 20160526
  Serious: Yes (Life-Threatening, Hospitalization, Other)
  Sender: FDA-Public Use
  Company Number: US-ABBVIE-16P-163-1561404-00

PATIENT
  Age: 37 Year
  Sex: Female

DRUGS (2)
  1. DEPAKOTE [Suspect]
     Active Substance: DIVALPROEX SODIUM
     Indication: BIPOLAR DISORDER
     Route: 065
  2. LAMICTAL [Interacting]
     Active Substance: LAMOTRIGINE
     Indication: BIPOLAR DISORDER
     Route: 065

REACTIONS (12)
  - Oropharyngeal pain [Unknown]
  - Sinus disorder [Unknown]
  - Abasia [Unknown]
  - Lacrimal disorder [Unknown]
  - Stevens-Johnson syndrome [Unknown]
  - Eye pain [Unknown]
  - Nerve injury [Unknown]
  - Chest pain [Unknown]
  - Blindness [Unknown]
  - Ear pain [Unknown]
  - Traumatic lung injury [Unknown]
  - Drug interaction [Unknown]

NARRATIVE: CASE EVENT DATE: 2009
